FAERS Safety Report 9120311 (Version 1)
Quarter: 2013Q1

REPORT INFORMATION
  Report Type: Spontaneous
  Country: US (occurrence: US)
  Receive Date: 20130226
  Receipt Date: 20130226
  Transmission Date: 20140127
  Serious: No
  Sender: FDA-Public Use
  Company Number: US-BAYER-2013-020856

PATIENT
  Age: 67 Year
  Sex: Female

DRUGS (1)
  1. CLIMARA [Suspect]

REACTIONS (3)
  - Application site urticaria [None]
  - Application site haemorrhage [None]
  - Application site pruritus [None]
